FAERS Safety Report 21009661 (Version 2)
Quarter: 2022Q3

REPORT INFORMATION
  Report Type: Report from Study
  Country: US (occurrence: US)
  Receive Date: 20220627
  Receipt Date: 20220718
  Transmission Date: 20221027
  Serious: Yes (Life-Threatening, Hospitalization, Disabling, Other)
  Sender: FDA-Public Use
  Company Number: US-EXELIXIS-CABO-22052986

PATIENT
  Age: 76 Year
  Sex: Male

DRUGS (1)
  1. CABOMETYX [Suspect]
     Active Substance: CABOZANTINIB S-MALATE
     Indication: Hepatic cancer
     Dosage: 40 MG, QD
     Route: 048
     Dates: start: 20220603, end: 202206

REACTIONS (5)
  - Fall [Unknown]
  - Walking disability [Unknown]
  - Delirium [Unknown]
  - Varices oesophageal [Unknown]
  - Nausea [Unknown]

NARRATIVE: CASE EVENT DATE: 20220601
